FAERS Safety Report 20683565 (Version 2)
Quarter: 2022Q2

REPORT INFORMATION
  Report Type: Spontaneous
  Country: IT (occurrence: IT)
  Receive Date: 20220407
  Receipt Date: 20220427
  Transmission Date: 20220721
  Serious: Yes (Other)
  Sender: FDA-Public Use
  Company Number: IT-NOVARTISPH-NVSC2022IT077633

PATIENT
  Age: 60 Year
  Sex: Male

DRUGS (2)
  1. SECUKINUMAB [Suspect]
     Active Substance: SECUKINUMAB
     Indication: Psoriasis
     Dosage: 300 MG, QMO (150 MG X 2)
     Route: 065
     Dates: start: 2019, end: 202202
  2. PENICILLIN G BENZATHINE [Concomitant]
     Active Substance: PENICILLIN G BENZATHINE
     Indication: Product used for unknown indication
     Dosage: 1 DOSAGE FORM, QW (1 VIAL FOR EACH BUTTOCK EVERY 7 DAYS FOR 3 WEEKS) (0,7,14)
     Route: 065
     Dates: start: 20220404

REACTIONS (1)
  - Secondary syphilis [Unknown]
